FAERS Safety Report 8694752 (Version 2)
Quarter: 2013Q4

REPORT INFORMATION
  Report Type: Spontaneous
  Country: FR (occurrence: FR)
  Receive Date: 20120731
  Receipt Date: 20131107
  Transmission Date: 20140711
  Serious: Yes (Hospitalization)
  Sender: FDA-Public Use
  Company Number: FR-MSD-1207FRA007152

PATIENT
  Age: 55 Year
  Sex: Male

DRUGS (5)
  1. VIRAFERONPEG [Suspect]
     Indication: HEPATITIS C
     Dosage: 0.4 UNK, UNK
     Route: 058
     Dates: start: 20120102
  2. REBETOL [Suspect]
     Indication: HEPATITIS C
     Dosage: 1000, UNK
     Route: 048
     Dates: start: 20120102
  3. REBETOL [Suspect]
     Dosage: 600 MG, QD
     Dates: start: 20120102
  4. TELAPREVIR [Suspect]
     Indication: HEPATITIS C
     Dosage: UNK
     Route: 048
     Dates: start: 20120102, end: 20120325
  5. FRAXODI [Suspect]
     Indication: PORTAL VEIN THROMBOSIS
     Dosage: UNK
     Route: 058
     Dates: start: 20120307

REACTIONS (2)
  - Eczema [Recovered/Resolved]
  - Pruritus [Recovered/Resolved]
